FAERS Safety Report 6350017-5 (Version None)
Quarter: 2009Q3

REPORT INFORMATION
  Report Type: 
  Country: None (occurrence: None)
  Receive Date: 20090911
  Receipt Date: 20090622
  Transmission Date: 20100115
  Serious: No
  Sender: FDA-Public Use
  Company Number: US-ABBOTT-06P-163-0349617-00

PATIENT
  Sex: Female
  Weight: 80.812 kg

DRUGS (7)
  1. HUMIRA [Suspect]
     Indication: RHEUMATOID ARTHRITIS
     Route: 058
     Dates: start: 20060801
  2. HUMIRA [Suspect]
     Indication: PSORIASIS
  3. CITALOPRAM HYDROBROMIDE [Concomitant]
     Indication: RHEUMATOID ARTHRITIS
     Route: 048
     Dates: start: 20050101
  4. QUETIAPINE [Concomitant]
     Indication: DRUG USE FOR UNKNOWN INDICATION
     Route: 048
     Dates: start: 20050101
  5. CARISOPRODOL [Concomitant]
     Indication: PAIN
     Route: 048
     Dates: start: 20050101
  6. VICODIN [Concomitant]
     Indication: PAIN
     Route: 048
     Dates: start: 20030101
  7. MORPHINE SULFATE INJ [Concomitant]
     Indication: PAIN
     Route: 048
     Dates: start: 20061001

REACTIONS (3)
  - ACCIDENTAL NEEDLE STICK [None]
  - HYPOAESTHESIA [None]
  - INCORRECT DOSE ADMINISTERED [None]
